FAERS Safety Report 4413354-7 (Version None)
Quarter: 2004Q3

REPORT INFORMATION
  Report Type: 
  Country: None (occurrence: None)
  Receive Date: 20040728
  Receipt Date: 20040715
  Transmission Date: 20050211
  Serious: Yes (Hospitalization)
  Sender: FDA-Public Use
  Company Number: S04-USA-03833-01

PATIENT
  Age: 28 Year
  Sex: Male

DRUGS (3)
  1. LEXAPRO [Suspect]
     Indication: DEPRESSION
     Dosage: 10 MG QD PO
     Route: 048
     Dates: start: 20040618, end: 20040621
  2. LEXAPRO [Suspect]
     Indication: DEPRESSION
     Dosage: 270 MG ONCE PO
     Route: 048
     Dates: start: 20040625, end: 20040625
  3. EXCEDRIN (MIGRAINE) [Concomitant]

REACTIONS (18)
  - ABASIA [None]
  - AGITATION [None]
  - CACHEXIA [None]
  - CHOREA [None]
  - CHOREOATHETOSIS [None]
  - CONVERSION DISORDER [None]
  - DEPRESSED LEVEL OF CONSCIOUSNESS [None]
  - DIFFICULTY IN WALKING [None]
  - DIZZINESS [None]
  - DYSTONIA [None]
  - GAIT DISTURBANCE [None]
  - HYPOAESTHESIA [None]
  - INSOMNIA [None]
  - INTENTIONAL OVERDOSE [None]
  - MEMORY IMPAIRMENT [None]
  - MENTAL STATUS CHANGES [None]
  - SUICIDE ATTEMPT [None]
  - WHEELCHAIR USER [None]
